FAERS Safety Report 8581854-4 (Version None)
Quarter: 2012Q3

REPORT INFORMATION
  Report Type: 
  Country: None (occurrence: None)
  Receive Date: 20120801
  Receipt Date: 20120801
  Transmission Date: 20120928
  Serious: Yes (Other)
  Sender: FDA-Public Use
  Company Number: None

PATIENT
  Sex: Male
  Weight: 134.7183 kg

DRUGS (2)
  1. LATUDA [Concomitant]
  2. PRAVASTATIN SODIUM [Suspect]
     Indication: LOW DENSITY LIPOPROTEIN INCREASED
     Dosage: 10 MG. 1/PER DAY ORAL W/FLUID ; 1 DAILY FOR SEVERAL MONTHS
     Route: 048

REACTIONS (1)
  - INCREASED UPPER AIRWAY SECRETION [None]
